FAERS Safety Report 14553854 (Version 2)
Quarter: 2018Q1

REPORT INFORMATION
  Report Type: Spontaneous
  Country: US (occurrence: US)
  Receive Date: 20180220
  Receipt Date: 20180220
  Transmission Date: 20180509
  Serious: No
  Sender: FDA-Public Use
  Company Number: US-DOLLAR GENERAL PREMIER BRANDS OF AMERICA INC.-2042306

PATIENT
  Age: 42 Year
  Sex: Female

DRUGS (1)
  1. LIQUID CORN AND CALLUS REMOVER [Suspect]
     Active Substance: SALICYLIC ACID
     Indication: SKIN LESION REMOVAL
     Route: 061
     Dates: start: 20180202, end: 20180204

REACTIONS (1)
  - Infection [Recovering/Resolving]

NARRATIVE: CASE EVENT DATE: 20180204
